FAERS Safety Report 11820857 (Version 1)
Quarter: 2015Q4

REPORT INFORMATION
  Report Type: Spontaneous
  Country: GB (occurrence: GB)
  Receive Date: 20151210
  Receipt Date: 20151210
  Transmission Date: 20160305
  Serious: Yes (Other)
  Sender: FDA-Public Use
  Company Number: GB-TARO PHARMACEUTICALS USA.,INC-2015SUN02272

PATIENT
  Age: 50 Year
  Sex: Female

DRUGS (2)
  1. WARFARIN [Suspect]
     Active Substance: WARFARIN
     Indication: EMBOLISM VENOUS
     Dosage: 3 MG, QD, MON-FRI
     Route: 065
  2. WARFARIN [Suspect]
     Active Substance: WARFARIN
     Dosage: 4 MG, QD SAT-SUN
     Route: 065

REACTIONS (9)
  - Anticoagulation drug level above therapeutic [Recovered/Resolved]
  - Lipodystrophy acquired [None]
  - Epistaxis [Recovered/Resolved]
  - Arthralgia [None]
  - Drug-disease interaction [Recovered/Resolved]
  - International normalised ratio increased [Recovered/Resolved]
  - Gingival bleeding [Recovered/Resolved]
  - Contusion [Recovered/Resolved]
  - Headache [Recovered/Resolved]
